FAERS Safety Report 17894783 (Version 1)
Quarter: 2020Q2

REPORT INFORMATION
  Report Type: Spontaneous
  Country: US (occurrence: US)
  Receive Date: 20200612
  Receipt Date: 20200612
  Transmission Date: 20200714
  Serious: No
  Sender: FDA-Public Use
  Company Number: None

PATIENT
  Age: 73 Year
  Sex: Male
  Weight: 79.1 kg

DRUGS (8)
  1. TOCILIZUMAB. [Suspect]
     Active Substance: TOCILIZUMAB
     Indication: COVID-19
     Route: 041
  2. ATORVASTATIN 20 MG [Concomitant]
     Active Substance: ATORVASTATIN
     Dates: end: 20200610
  3. VANCOMYCIN [Concomitant]
     Active Substance: VANCOMYCIN
     Dates: start: 20200608, end: 20200609
  4. CEFEPIME 2 G IV [Concomitant]
     Dates: start: 20200608, end: 20200609
  5. REMDESIVIR. [Suspect]
     Active Substance: REMDESIVIR
  6. CULTURELLE 1 CAPSULE [Concomitant]
  7. LOSARTAN 25 MG [Concomitant]
     Active Substance: LOSARTAN
     Dates: end: 20200611
  8. HEPARIN 7500 UNITS [Concomitant]
     Dates: start: 20200601

REACTIONS (2)
  - Alanine aminotransferase increased [None]
  - Aspartate aminotransferase increased [None]

NARRATIVE: CASE EVENT DATE: 20200609
